FAERS Safety Report 17166060 (Version 2)
Quarter: 2020Q1

REPORT INFORMATION
  Report Type: Spontaneous
  Country: US (occurrence: US)
  Receive Date: 20191217
  Receipt Date: 20200116
  Transmission Date: 20200409
  Serious: No
  Sender: FDA-Public Use
  Company Number: US-SA-2019SA346584

PATIENT
  Age: 78 Year
  Sex: Female

DRUGS (1)
  1. PRALUENT [Suspect]
     Active Substance: ALIROCUMAB
     Indication: BLOOD CHOLESTEROL ABNORMAL
     Dosage: 75 MG, QOW
     Dates: start: 20191127

REACTIONS (4)
  - Wrong technique in device usage process [Unknown]
  - Product administered at inappropriate site [Unknown]
  - Peripheral swelling [Unknown]
  - Injury associated with device [Unknown]

NARRATIVE: CASE EVENT DATE: 20191211
